FAERS Safety Report 4328194-7 (Version None)
Quarter: 2004Q1

REPORT INFORMATION
  Report Type: 
  Country: None (occurrence: None)
  Receive Date: 20040331
  Receipt Date: 20040318
  Transmission Date: 20041129
  Serious: Yes (Hospitalization)
  Sender: FDA-Public Use
  Company Number: NZ-GLAXOSMITHKLINE-B0327042A

PATIENT
  Age: 64 Year
  Sex: Female
  Weight: 62 kg

DRUGS (3)
  1. PAROXETINE HCL [Suspect]
     Indication: DEPRESSION
     Dosage: 20MG PER DAY
     Route: 048
     Dates: start: 19960101, end: 20040304
  2. LIPITOR [Concomitant]
     Dosage: 40MG PER DAY
     Route: 048
     Dates: start: 20020101
  3. VENLAFAXINE [Concomitant]
     Dosage: 75MG PER DAY
     Dates: start: 20040309

REACTIONS (4)
  - AGGRESSION [None]
  - AGITATION [None]
  - DRUG WITHDRAWAL SYNDROME [None]
  - INSOMNIA [None]
